FAERS Safety Report 4889048-0 (Version None)
Quarter: 2005Q4

REPORT INFORMATION
  Report Type: 
  Country: None (occurrence: None)
  Receive Date: 20051215
  Receipt Date: 20050502
  Transmission Date: 20060501
  Serious: Yes (Hospitalization)
  Sender: FDA-Public Use
  Company Number: 2005057505

PATIENT
  Age: 27 Year
  Sex: Male
  Weight: 65.7716 kg

DRUGS (1)
  1. BEXTRA [Suspect]
     Indication: NECK INJURY
     Dosage: ORAL
     Route: 048

REACTIONS (10)
  - ABDOMINAL PAIN [None]
  - DYSPNOEA [None]
  - FEELING ABNORMAL [None]
  - HEADACHE [None]
  - NAUSEA [None]
  - PAIN [None]
  - PRURITUS [None]
  - PYREXIA [None]
  - ROTATOR CUFF SYNDROME [None]
  - WEIGHT DECREASED [None]
